FAERS Safety Report 25934906 (Version 1)
Quarter: 2025Q4

REPORT INFORMATION
  Report Type: Spontaneous
  Country: US (occurrence: None)
  Receive Date: 20251017
  Receipt Date: 20251017
  Transmission Date: 20260118
  Serious: Yes (Hospitalization)
  Sender: FDA-CTU
  Company Number: None

PATIENT
  Sex: Female

DRUGS (1)
  1. CAPECITABINE [Suspect]
     Active Substance: CAPECITABINE
     Indication: Ductal adenocarcinoma of pancreas
     Dosage: 1000 MG TWICE A DAY ORAL ?
     Route: 048
     Dates: start: 20250714

REACTIONS (3)
  - Nausea [None]
  - Vomiting [None]
  - Weight decreased [None]
